FAERS Safety Report 4312758-0 (Version None)
Quarter: 2004Q1

REPORT INFORMATION
  Report Type: 
  Country: None (occurrence: None)
  Receive Date: 20040302
  Receipt Date: 20031201
  Transmission Date: 20041129
  Serious: No
  Sender: FDA-Public Use
  Company Number: WAES 0310USA01497

PATIENT
  Sex: 0

DRUGS (1)
  1. CANCIDAS [Suspect]
     Dosage: IV
     Route: 042

REACTIONS (1)
  - HYPERCALCAEMIA [None]
